FAERS Safety Report 7380526-1 (Version None)
Quarter: 2011Q1

REPORT INFORMATION
  Report Type: 
  Country: None (occurrence: None)
  Receive Date: 20110329
  Receipt Date: 20091122
  Transmission Date: 20110831
  Serious: Yes (Death, Hospitalization, Other)
  Sender: FDA-Public Use
  Company Number: US-BAYER-201038910NA

PATIENT
  Sex: Female
  Weight: 56 kg

DRUGS (28)
  1. MUCOMYST [Concomitant]
     Indication: PRODUCT USED FOR UNKNOWN INDICATION
     Dosage: 600MG TWICE A DAY TIMES 4 DOSES
  2. TRASYLOL [Suspect]
     Dosage: 50 ML, Q1HR
     Route: 042
     Dates: start: 20040331, end: 20040331
  3. DIGOXIN [Concomitant]
     Indication: PRODUCT USED FOR UNKNOWN INDICATION
     Dosage: 0.125MG DAILY
     Route: 048
  4. ZOCOR [Concomitant]
     Indication: PRODUCT USED FOR UNKNOWN INDICATION
     Dosage: 40MG DAILY
     Route: 048
  5. IMDUR [Concomitant]
     Indication: CARDIAC DISORDER
     Dosage: 60MG DAILY
     Route: 048
  6. ZESTRIL [Concomitant]
     Indication: PRODUCT USED FOR UNKNOWN INDICATION
     Dosage: 40MG DAILY
     Route: 048
  7. ENALAPRIL MALEATE [Concomitant]
     Indication: HYPERTENSION
     Dosage: 10MG TWICE DAILY
     Route: 048
  8. AMIODARONE HCL [Concomitant]
     Indication: PRODUCT USED FOR UNKNOWN INDICATION
     Dosage: 150MG THEN TITRATE
     Route: 042
     Dates: start: 20040331
  9. HEPARIN SODIUM [Concomitant]
     Indication: PRODUCT USED FOR UNKNOWN INDICATION
     Dosage: 45, 000UNITS TOTAL
     Route: 042
     Dates: start: 20040331
  10. LEVOPHED [Concomitant]
     Dosage: TITRATE
     Route: 042
     Dates: start: 20040331
  11. NOVOLIN 70/30 PREFILLED [Concomitant]
     Route: 058
  12. MANNITOL [Concomitant]
     Indication: PRODUCT USED FOR UNKNOWN INDICATION
     Dosage: 25GMS
     Dates: start: 20040331
  13. TRASYLOL [Suspect]
     Indication: MITRAL VALVE REPLACEMENT
     Dosage: 200 ML, PRIME
     Route: 042
     Dates: start: 20040331, end: 20040331
  14. TRASYLOL [Suspect]
     Dosage: 200 ML
     Dates: start: 20040331, end: 20040331
  15. FENTANYL [Concomitant]
     Indication: PRODUCT USED FOR UNKNOWN INDICATION
     Dosage: 46MCG TOTAL
     Route: 042
     Dates: start: 20040331
  16. PROTAMINE SULFATE [Concomitant]
     Indication: PRODUCT USED FOR UNKNOWN INDICATION
     Dosage: 600MG TOTAL
     Route: 042
     Dates: start: 20040331
  17. LIDOCAINE [Concomitant]
     Dosage: 105MG
     Route: 042
     Dates: start: 20040331
  18. CORDARONE [Concomitant]
     Indication: CARDIAC DISORDER
     Dosage: 200MG DAILY
     Route: 048
  19. LOVASTATIN [Concomitant]
     Indication: BLOOD CHOLESTEROL INCREASED
     Dosage: 40MG DAILY
     Route: 048
  20. VECURONIUM BROMIDE [Concomitant]
     Indication: PRODUCT USED FOR UNKNOWN INDICATION
     Dosage: 20MG TOTAL
     Route: 042
     Dates: start: 20040331
  21. KEFZOL [Concomitant]
     Indication: PRODUCT USED FOR UNKNOWN INDICATION
     Dosage: 2 GM TOTAL
     Route: 042
     Dates: start: 20040331
  22. LASIX [Concomitant]
     Indication: PRODUCT USED FOR UNKNOWN INDICATION
     Dosage: 80MG TWICE A DAY
     Route: 048
  23. COUMADIN [Concomitant]
     Indication: PRODUCT USED FOR UNKNOWN INDICATION
     Dosage: 7.5MG AT NIGHT
     Route: 048
  24. LIDOCAINE [Concomitant]
     Indication: PRODUCT USED FOR UNKNOWN INDICATION
     Dosage: 20 UNITS
     Route: 058
     Dates: start: 20040322
  25. LASIX [Concomitant]
     Indication: CARDIAC DISORDER
     Dosage: 40MG
     Route: 042
     Dates: start: 20040322
  26. MIDAZOLAM [Concomitant]
     Indication: PRODUCT USED FOR UNKNOWN INDICATION
     Dosage: 10MCG TOTAL
     Route: 042
     Dates: start: 20040331
  27. TRASYLOL [Suspect]
     Indication: CORONARY ARTERY BYPASS
     Dosage: 1 ML, TEST DOSE
     Route: 042
     Dates: start: 20040331, end: 20040331
  28. ZAROXOLYN [Concomitant]
     Indication: PRODUCT USED FOR UNKNOWN INDICATION
     Dosage: 2.5MG DAILY
     Route: 048

REACTIONS (13)
  - EMOTIONAL DISTRESS [None]
  - DEATH [None]
  - RENAL FAILURE ACUTE [None]
  - MULTI-ORGAN FAILURE [None]
  - RENAL FAILURE [None]
  - STRESS [None]
  - INJURY [None]
  - RENAL IMPAIRMENT [None]
  - FEAR [None]
  - RENAL INJURY [None]
  - ANXIETY [None]
  - UNEVALUABLE EVENT [None]
  - PAIN [None]
